FAERS Safety Report 26105928 (Version 1)
Quarter: 2025Q4

REPORT INFORMATION
  Report Type: Report from Study
  Country: EU (occurrence: EU)
  Receive Date: 20251201
  Receipt Date: 20251201
  Transmission Date: 20260118
  Serious: Yes (Hospitalization, Other)
  Sender: TAKEDA
  Company Number: EU-JNJFOC-20251165340

PATIENT
  Age: 64 Year
  Sex: Male

DRUGS (15)
  1. BORTEZOMIB [Suspect]
     Active Substance: BORTEZOMIB
     Indication: Plasma cell myeloma
     Dosage: 1.26 MILLIGRAM
     Dates: start: 20230330, end: 20240321
  2. DEXAMETHASONE [Suspect]
     Active Substance: DEXAMETHASONE
     Indication: Plasma cell myeloma
     Dosage: 20 MILLIGRAM
     Dates: start: 20230330, end: 20240321
  3. DARATUMUMAB [Suspect]
     Active Substance: DARATUMUMAB
     Indication: Plasma cell myeloma
     Dosage: 1800 MILLIGRAM
     Dates: start: 20230330, end: 20240321
  4. THALIDOMIDE [Suspect]
     Active Substance: THALIDOMIDE
     Indication: Plasma cell myeloma
     Dosage: 100 MILLIGRAM
     Dates: start: 20230330, end: 20240321
  5. LACOSAMIDE [Concomitant]
     Active Substance: LACOSAMIDE
     Indication: Seizure prophylaxis
     Dosage: UNK
     Dates: start: 20240327, end: 20240410
  6. CLOBAZAM [Concomitant]
     Active Substance: CLOBAZAM
     Indication: Anxiety
     Dosage: UNK
     Dates: start: 20240327, end: 20240410
  7. PANTOPRAZOLE [Concomitant]
     Active Substance: PANTOPRAZOLE
     Indication: Product used for unknown indication
     Dosage: UNK
  8. PANTOPRAZOLE [Concomitant]
     Active Substance: PANTOPRAZOLE
     Indication: Prophylaxis
     Dosage: UNK
  9. ENOXAPARIN SODIUM [Concomitant]
     Active Substance: ENOXAPARIN SODIUM
     Indication: Prophylaxis
     Dosage: UNK
     Dates: start: 20240320, end: 20240505
  10. BACTRIM [Concomitant]
     Active Substance: SULFAMETHOXAZOLE\TRIMETHOPRIM
     Indication: Prophylaxis
     Dosage: UNK
  11. ACYCLOVIR [Concomitant]
     Active Substance: ACYCLOVIR
     Indication: Prophylaxis
     Dosage: UNK
  12. SIMVASTATIN [Concomitant]
     Active Substance: SIMVASTATIN
     Indication: Prophylaxis
     Dosage: UNK
  13. DULOXETINE [Concomitant]
     Active Substance: DULOXETINE
     Indication: Anxiety
     Dosage: UNK
  14. PREGABALIN [Concomitant]
     Active Substance: PREGABALIN
     Indication: Seizure prophylaxis
     Dosage: UNK
     Dates: start: 20240320, end: 20250218
  15. SILODOSIN [Concomitant]
     Active Substance: SILODOSIN
     Indication: Product used for unknown indication
     Dosage: UNK
     Dates: start: 20240320, end: 20241217

REACTIONS (1)
  - Epilepsy [Recovered/Resolved]

NARRATIVE: CASE EVENT DATE: 20240327
